FAERS Safety Report 6175520-2 (Version None)
Quarter: 2009Q2

REPORT INFORMATION
  Report Type: 
  Country: None (occurrence: None)
  Receive Date: 20090429
  Receipt Date: 20090417
  Transmission Date: 20091009
  Serious: Yes (Other)
  Sender: FDA-Public Use
  Company Number: 2009US001171

PATIENT

DRUGS (2)
  1. AMEVIVE [Suspect]
     Indication: GRAFT VERSUS HOST DISEASE
     Dosage: 15 MG, INTRAMUSCULAR
     Route: 030
  2. PROGRAF [Suspect]
     Indication: GRAFT VERSUS HOST DISEASE
     Dosage: ORAL
     Route: 048

REACTIONS (1)
  - CYSTITIS HAEMORRHAGIC [None]
